FAERS Safety Report 8287572-4 (Version None)
Quarter: 2012Q2

REPORT INFORMATION
  Report Type: 
  Country: None (occurrence: None)
  Receive Date: 20120416
  Receipt Date: 20120406
  Transmission Date: 20120825
  Serious: Yes (Other)
  Sender: FDA-Public Use
  Company Number: PHEH2012US002152

PATIENT
  Sex: Female

DRUGS (3)
  1. GLEEVEC [Suspect]
     Indication: CHRONIC MYELOID LEUKAEMIA
  2. TASIGNA [Suspect]
     Dosage: 200 MG, BID
  3. SPRYCEL [Suspect]

REACTIONS (4)
  - RASH [None]
  - PLEURAL EFFUSION [None]
  - DRUG INTOLERANCE [None]
  - BURNING SENSATION [None]
